FAERS Safety Report 9996475 (Version 9)
Quarter: 2016Q3

REPORT INFORMATION
  Report Type: Report from Study
  Country: US (occurrence: US)
  Receive Date: 20140311
  Receipt Date: 20160817
  Transmission Date: 20161109
  Serious: Yes (Hospitalization, Other)
  Sender: FDA-Public Use
  Company Number: US-SA-2014SA028075

PATIENT
  Age: 45 Year
  Sex: Female

DRUGS (4)
  1. VITAMIN D [Concomitant]
     Active Substance: CHOLECALCIFEROL
  2. AUBAGIO [Suspect]
     Active Substance: TERIFLUNOMIDE
     Indication: MULTIPLE SCLEROSIS
     Route: 048
     Dates: start: 20131116
  3. TRIAMCINOLONE [Concomitant]
     Active Substance: TRIAMCINOLONE
  4. AUBAGIO [Suspect]
     Active Substance: TERIFLUNOMIDE
     Indication: MULTIPLE SCLEROSIS
     Route: 048
     Dates: start: 20160219

REACTIONS (13)
  - Alopecia [Not Recovered/Not Resolved]
  - Drug dose omission [Unknown]
  - Pneumonia [Recovered/Resolved]
  - Urticaria [Unknown]
  - Accident [Unknown]
  - Fatigue [Unknown]
  - Somnolence [Unknown]
  - Mobility decreased [Unknown]
  - Anxiety [Unknown]
  - Emotional disorder [Unknown]
  - Tendon rupture [Unknown]
  - Limb discomfort [Unknown]
  - Weight decreased [Unknown]

NARRATIVE: CASE EVENT DATE: 2014
